FAERS Safety Report 13400945 (Version 1)
Quarter: 2017Q2

REPORT INFORMATION
  Report Type: Spontaneous
  Country: US (occurrence: US)
  Receive Date: 20170404
  Receipt Date: 20170404
  Transmission Date: 20170830
  Serious: No
  Sender: FDA-Public Use
  Company Number: US-GLAXOSMITHKLINE-US2017GSK047149

PATIENT
  Age: 51 Year
  Sex: Female

DRUGS (1)
  1. ADVAIR HFA [Suspect]
     Active Substance: FLUTICASONE PROPIONATE\SALMETEROL XINAFOATE
     Indication: ASTHMA
     Dosage: UNK UNK, QD
     Dates: start: 2007

REACTIONS (5)
  - Intentional product misuse [Unknown]
  - Drug ineffective [Unknown]
  - Bronchitis [Unknown]
  - Intentional underdose [Unknown]
  - Inability to afford medication [Unknown]

NARRATIVE: CASE EVENT DATE: 201702
